FAERS Safety Report 5746721-X (Version None)
Quarter: 2008Q2

REPORT INFORMATION
  Report Type: 
  Country: None (occurrence: None)
  Receive Date: 20080522
  Receipt Date: 20080514
  Transmission Date: 20081010
  Serious: Yes (Hospitalization)
  Sender: FDA-Public Use
  Company Number: US-ELI_LILLY_AND_COMPANY-US200805003534

PATIENT
  Sex: Female

DRUGS (13)
  1. BYETTA [Suspect]
     Indication: GLUCOSE TOLERANCE IMPAIRED
     Dosage: 5 UG, 2/D
     Route: 058
     Dates: start: 20080323, end: 20080424
  2. BYETTA [Suspect]
     Dosage: 10 UG, 2/D
     Route: 058
     Dates: start: 20080425
  3. POTASSIUM CHLORIDE [Concomitant]
     Indication: DIURETIC THERAPY
     Dosage: 40 MEQ, DAILY (1/D)
     Route: 048
  4. FUROSEMIDE [Concomitant]
     Indication: DIURETIC THERAPY
     Dosage: 40 MG, DAILY (1/D)
     Route: 048
  5. WARFARIN SODIUM [Concomitant]
     Indication: FACTOR V LEIDEN MUTATION
     Dosage: 2 MG, UNK
     Route: 048
  6. WARFARIN SODIUM [Concomitant]
     Dosage: 1 MG, 3/W
     Route: 048
  7. ACTONEL [Concomitant]
     Indication: BONE DISORDER
     Dosage: 35 MG, WEEKLY (1/W)
     Route: 048
  8. PROPRANOLOL [Concomitant]
     Indication: MIGRAINE
     Dosage: 40 MG, 2/D
     Route: 048
  9. METFORMIN HCL [Concomitant]
     Indication: GLUCOSE TOLERANCE IMPAIRED
     Dosage: 500 MG, 2/D
     Route: 048
  10. ZETIA [Concomitant]
     Indication: BLOOD CHOLESTEROL
     Dosage: 10 MG, 2/D
     Route: 048
  11. OTHER ANTITHROMBOTIC AGENTS [Concomitant]
     Indication: ANTICOAGULANT THERAPY
     Dosage: UNK, UNK
     Route: 051
     Dates: start: 20080401, end: 20080401
  12. OTHER NASAL PREPARATIONS [Concomitant]
     Route: 045
  13. OTHER VITAMIN PRODUCTS, COMBINATIONS [Concomitant]

REACTIONS (8)
  - BLOOD DISORDER [None]
  - DYSPEPSIA [None]
  - HEADACHE [None]
  - LOSS OF CONSCIOUSNESS [None]
  - MIGRAINE [None]
  - NAUSEA [None]
  - SPEECH DISORDER [None]
  - VOMITING [None]
